FAERS Safety Report 7779349-0 (Version None)
Quarter: 2011Q3

REPORT INFORMATION
  Report Type: 
  Country: None (occurrence: None)
  Receive Date: 20110926
  Receipt Date: 20110822
  Transmission Date: 20111222
  Serious: Yes (Hospitalization)
  Sender: FDA-Public Use
  Company Number: PHHO2011AU12545

PATIENT
  Sex: Male
  Weight: 80 kg

DRUGS (26)
  1. NEORAL [Suspect]
     Dosage: 100 MG, BID
     Route: 048
  2. OXYCODONE [Concomitant]
     Indication: PAIN
     Dosage: 50 MG, UNK
  3. DILTIAZEM [Concomitant]
     Indication: HYPERTENSION
     Dosage: 180 MG, QD
     Route: 048
  4. ACEON [Concomitant]
     Indication: HYPERTENSION
     Dosage: 5 MG, UNK
  5. PREDNISOLONE [Concomitant]
     Dosage: 15 MG, UNK
  6. NEORAL [Suspect]
     Dosage: 125 MG, UNK
     Route: 048
  7. MYFORTIC [Suspect]
     Indication: RENAL TRANSPLANT
     Dosage: 720 MG, BID
     Route: 048
     Dates: start: 20110527
  8. SEPTRA [Suspect]
     Indication: PNEUMOCYSTIS JIROVECI PNEUMONIA
  9. NEORAL [Suspect]
     Dosage: 200 MG, UNK
     Route: 048
  10. NEORAL [Suspect]
     Dosage: 75 MG, UNK
     Route: 048
  11. PREDNISONE [Concomitant]
     Dosage: 17.5 MG, UNK
  12. ESOMEPRAZOLE SODIUM [Concomitant]
     Indication: GASTROOESOPHAGEAL REFLUX DISEASE
     Dosage: 40 MG, BID
     Route: 048
  13. VALGANCICLOVIR [Concomitant]
     Indication: INFECTION PROPHYLAXIS
     Dosage: 450 MG, UNK
     Route: 048
  14. SORBITOL [Concomitant]
     Indication: CONSTIPATION
  15. CINACALCET [Concomitant]
     Indication: HYPERPARATHYROIDISM
     Dosage: 30 MG, QD
  16. MYFORTIC [Suspect]
     Dosage: 720 MG, BID
  17. PREDNISONE [Concomitant]
     Dosage: 30 MG, UNK
  18. SODIUM BICARBONATE [Concomitant]
     Indication: METABOLIC ACIDOSIS
     Dosage: 840 MG, UNK
     Route: 048
  19. DOCUSATE SODIUM W/SENNA [Concomitant]
     Indication: CONSTIPATION
     Dosage: 50/8MG 2TB MORNING 2 TB EVENING
     Route: 048
  20. SIMVASTATIN [Concomitant]
     Indication: BLOOD CHOLESTEROL INCREASED
     Dosage: 40 MG, UNK
     Route: 048
  21. VALGANCICLOVIR [Concomitant]
     Dosage: ONE TABLET IN MORNING ON MONDAY,WESNESDAY, FRIDAY
  22. NEORAL [Suspect]
     Indication: RENAL TRANSPLANT
     Dosage: 250 MG, UNK
     Route: 048
     Dates: start: 20110527
  23. CALCIUM CARBONATE [Concomitant]
     Indication: BLOOD CALCIUM DECREASED
     Dosage: 1.5 G, UNK
     Route: 048
  24. GLICLAZIDE [Concomitant]
     Indication: DIABETES MELLITUS
     Dosage: 30 MG, QD
     Route: 048
  25. ACETAMINOPHEN [Concomitant]
     Indication: PAIN
     Dosage: 1000 MG, UNK
     Route: 048
  26. LACTULOSE [Concomitant]
     Indication: CONSTIPATION
     Dosage: 3.34 G, UNK

REACTIONS (11)
  - HYPERTENSION [None]
  - RENAL IMPAIRMENT [None]
  - LYMPHOCELE [None]
  - WHITE BLOOD CELL COUNT DECREASED [None]
  - INGUINAL HERNIA, OBSTRUCTIVE [None]
  - KIDNEY TRANSPLANT REJECTION [None]
  - IMMUNOSUPPRESSANT DRUG LEVEL INCREASED [None]
  - INCISION SITE INFECTION [None]
  - RENAL ARTERY STENOSIS [None]
  - FLUID OVERLOAD [None]
  - CELLULITIS [None]
